FAERS Safety Report 11707189 (Version 1)
Quarter: 2015Q4

REPORT INFORMATION
  Report Type: Spontaneous
  Country: US (occurrence: US)
  Receive Date: 20151106
  Receipt Date: 20151106
  Transmission Date: 20160304
  Serious: Yes (Hospitalization, Other)
  Sender: FDA-Public Use
  Company Number: PHHY2015US141111

PATIENT
  Age: 59 Year
  Sex: Female

DRUGS (1)
  1. SULFAMETHOXAZOLE AND TRIMETHOPRIM [Suspect]
     Active Substance: SULFAMETHOXAZOLE\TRIMETHOPRIM
     Indication: SUBCUTANEOUS ABSCESS
     Route: 065

REACTIONS (4)
  - Rash pruritic [Recovered/Resolved]
  - Conjunctivitis [Recovered/Resolved]
  - Organising pneumonia [Recovered/Resolved]
  - Diffuse alveolar damage [Recovered/Resolved]
